FAERS Safety Report 18283668 (Version 1)
Quarter: 2020Q3

REPORT INFORMATION
  Report Type: Spontaneous
  Country: US (occurrence: US)
  Receive Date: 20200918
  Receipt Date: 20200918
  Transmission Date: 20201103
  Serious: Yes (Death, Other)
  Sender: FDA-Public Use
  Company Number: US-PURDUE-USA-2020-0166774

PATIENT
  Sex: Male

DRUGS (3)
  1. OXYCONTIN [Suspect]
     Active Substance: OXYCODONE HYDROCHLORIDE
     Indication: PAIN
     Dosage: 30 MG
     Route: 048
  2. MS CONTIN [Suspect]
     Active Substance: MORPHINE SULFATE
     Indication: PAIN
     Dosage: 60 MG
     Route: 048
  3. VALIUM [Interacting]
     Active Substance: DIAZEPAM
     Indication: PAIN
     Dosage: UNKNOWN DOSE
     Route: 048

REACTIONS (9)
  - Drug abuse [Fatal]
  - Pneumonia staphylococcal [Fatal]
  - Endocarditis [Unknown]
  - Septic shock [Fatal]
  - Drug dependence [Unknown]
  - Hepatitis C [Unknown]
  - Coma [Unknown]
  - Drug interaction [Unknown]
  - Renal failure [Unknown]

NARRATIVE: CASE EVENT DATE: 2016
